FAERS Safety Report 8632444 (Version 3)
Quarter: 2013Q4

REPORT INFORMATION
  Report Type: Spontaneous
  Country: US (occurrence: US)
  Receive Date: 20120625
  Receipt Date: 20131216
  Transmission Date: 20140711
  Serious: Yes (Hospitalization)
  Sender: FDA-Public Use
  Company Number: US-BAYER-2012-060834

PATIENT
  Age: 21 Year
  Sex: Female
  Weight: 60.32 kg

DRUGS (3)
  1. YAZ [Suspect]
     Indication: CONTRACEPTION
     Dosage: UNK
     Dates: start: 2007, end: 2008
  2. PEPCID [Concomitant]
  3. MORPHINE [Concomitant]

REACTIONS (5)
  - Cholecystectomy [None]
  - Pancreatitis [None]
  - Cholelithiasis [None]
  - Pain [None]
  - Injury [None]
